FAERS Safety Report 15655327 (Version 15)
Quarter: 2023Q2

REPORT INFORMATION
  Report Type: Other
  Country: CA (occurrence: None)
  Receive Date: 20181126
  Receipt Date: 20230529
  Transmission Date: 20230722
  Serious: Yes (Other)
  Sender: FDA-Public Use
  Company Number: CA-ROCHE-2207248

PATIENT
  Age: 56 Year
  Sex: Female

DRUGS (20)
  1. OCREVUS [Suspect]
     Active Substance: OCRELIZUMAB
     Indication: Relapsing-remitting multiple sclerosis
     Dosage: 300 MG ON DAY 0 AND 14, THEN 600 MG EVERY 6 MONTH
     Route: 042
     Dates: start: 20181019
  2. METHYLPREDNISOLONE [Suspect]
     Active Substance: METHYLPREDNISOLONE
     Indication: Premedication
     Dosage: MOST RECENT DATE: 21/MAY/2020
     Route: 065
  3. BACLOFEN [Concomitant]
     Active Substance: BACLOFEN
     Indication: Muscle spasms
     Dosage: YES
  4. ESTROGEL [Concomitant]
     Active Substance: ESTRADIOL
     Dosage: YES
  5. PROMETRIUM [Concomitant]
     Active Substance: PROGESTERONE
     Dosage: YES
  6. SOLIFENACIN [Concomitant]
     Active Substance: SOLIFENACIN
     Dosage: YES
  7. OMNARIS [Concomitant]
     Active Substance: CICLESONIDE
     Dosage: YES
  8. BUPROPION [Concomitant]
     Active Substance: BUPROPION
     Indication: Depression
     Dosage: SOMETIMES SHE TAKES ONLY 300 MG A DAY ;ONGOING: YES
  9. DEXILANT [Concomitant]
     Active Substance: DEXLANSOPRAZOLE
     Dosage: YES
  10. PATADAY [Concomitant]
     Active Substance: OLOPATADINE HYDROCHLORIDE
     Indication: Hypersensitivity
  11. WELLBUTRIN [Concomitant]
     Active Substance: BUPROPION HYDROCHLORIDE
  12. BENADRYL [Concomitant]
     Active Substance: DIPHENHYDRAMINE HYDROCHLORIDE
     Indication: Dust allergy
  13. SALINE [Concomitant]
     Active Substance: SODIUM CHLORIDE
     Indication: Rhinitis allergic
  14. CORTISONE [Concomitant]
     Active Substance: CORTISONE
  15. DEXAMETHASONE [Concomitant]
     Active Substance: DEXAMETHASONE
  16. MYRBETRIQ [Concomitant]
     Active Substance: MIRABEGRON
  17. DECADRON [Concomitant]
     Active Substance: DEXAMETHASONE
     Route: 042
  18. SOLU-MEDROL [Concomitant]
     Active Substance: METHYLPREDNISOLONE SODIUM SUCCINATE
     Indication: Hepatitis
  19. VALTREX [Concomitant]
     Active Substance: VALACYCLOVIR HYDROCHLORIDE
     Indication: Oral herpes
  20. ALMOTRIPTAN [Concomitant]
     Active Substance: ALMOTRIPTAN
     Indication: Migraine

REACTIONS (21)
  - Eyelid infection [Recovering/Resolving]
  - Drug-induced liver injury [Not Recovered/Not Resolved]
  - Insomnia [Recovered/Resolved]
  - Euphoric mood [Recovered/Resolved]
  - Pruritus [Recovering/Resolving]
  - Headache [Recovered/Resolved]
  - Back pain [Not Recovered/Not Resolved]
  - Pain in extremity [Not Recovered/Not Resolved]
  - Arthralgia [Not Recovered/Not Resolved]
  - Eye pruritus [Recovering/Resolving]
  - Oral herpes [Recovered/Resolved]
  - Eyelid disorder [Not Recovered/Not Resolved]
  - Gastrointestinal infection [Recovered/Resolved]
  - Aphthous ulcer [Recovered/Resolved]
  - Nasopharyngitis [Recovered/Resolved]
  - Gait disturbance [Not Recovered/Not Resolved]
  - Pain [Unknown]
  - Anxiety [Unknown]
  - Insomnia [Unknown]
  - Eye disorder [Not Recovered/Not Resolved]
  - Muscle spasms [Not Recovered/Not Resolved]

NARRATIVE: CASE EVENT DATE: 20181019
